FAERS Safety Report 8654858 (Version 3)
Quarter: 2013Q2

REPORT INFORMATION
  Report Type: Spontaneous
  Country: JP (occurrence: JP)
  Receive Date: 20120709
  Receipt Date: 20130412
  Transmission Date: 20140414
  Serious: Yes (Life-Threatening, Hospitalization)
  Sender: FDA-Public Use
  Company Number: JP-GLAXOSMITHKLINE-B0812925A

PATIENT
  Age: 88 Year
  Sex: Female

DRUGS (15)
  1. VALTREX [Suspect]
     Indication: HERPES ZOSTER
     Dosage: 1000MG THREE TIMES PER DAY
     Route: 048
     Dates: start: 20120609, end: 20120612
  2. BUNAZOSIN HYDROCHLORIDE [Concomitant]
     Indication: HYPERTENSION
     Route: 048
     Dates: end: 20120612
  3. BLOPRESS [Concomitant]
     Indication: HYPERTENSION
     Dosage: 12MG PER DAY
     Route: 048
     Dates: end: 20120612
  4. BLOPRESS [Concomitant]
     Indication: HYPERTENSION
     Dosage: 8MG PER DAY
     Route: 048
     Dates: start: 20120618
  5. SINGULAIR [Concomitant]
     Indication: ASTHMA
     Dosage: 10MG PER DAY
     Route: 048
     Dates: end: 20120612
  6. SOLANAX [Concomitant]
     Indication: ANXIETY
     Dosage: .4MG PER DAY
     Route: 048
     Dates: end: 20120612
  7. SOLANAX [Concomitant]
     Indication: ANXIETY
     Dosage: .4MG PER DAY
     Route: 048
     Dates: start: 20120629
  8. AIROCOOL [Concomitant]
     Indication: ANGINA PECTORIS
     Dosage: 20MG TWICE PER DAY
     Route: 048
     Dates: end: 20120612
  9. THEOPHYLLINE [Concomitant]
     Indication: ASTHMA
     Dosage: 200MG TWICE PER DAY
     Route: 048
     Dates: end: 20120612
  10. ASPENON [Concomitant]
     Indication: ARRHYTHMIA
     Dosage: 20MG TWICE PER DAY
     Route: 048
     Dates: end: 20120612
  11. ABILIT [Concomitant]
     Indication: DEPRESSION
     Dosage: 50MG THREE TIMES PER DAY
     Route: 048
     Dates: end: 20120612
  12. DEPAS [Concomitant]
     Indication: ANXIETY
     Dosage: .5MG THREE TIMES PER DAY
     Route: 048
     Dates: start: 20120609, end: 20120612
  13. MUCOSTA [Concomitant]
     Indication: ABDOMINAL PAIN UPPER
     Dosage: 100MG THREE TIMES PER DAY
     Route: 048
     Dates: start: 20120609, end: 20120612
  14. ASVERIN (TIPEPIDINE HIBENZATE) [Concomitant]
     Route: 048
  15. DOGMATYL [Concomitant]
     Route: 065

REACTIONS (13)
  - Renal failure acute [Recovered/Resolved]
  - Urinary retention [Unknown]
  - Asthenia [Unknown]
  - Decreased appetite [Unknown]
  - Feeling abnormal [Unknown]
  - Confusional state [Unknown]
  - Asthenia [Unknown]
  - Renal cyst [Unknown]
  - Kidney enlargement [Unknown]
  - Spleen scan abnormal [Unknown]
  - Blood urea increased [Unknown]
  - Blood creatinine increased [Unknown]
  - Blood uric acid increased [Unknown]
